FAERS Safety Report 7414939-6 (Version None)
Quarter: 2011Q2

REPORT INFORMATION
  Report Type: 
  Country: None (occurrence: None)
  Receive Date: 20110406
  Receipt Date: 20110324
  Transmission Date: 20111010
  Serious: Yes (Hospitalization)
  Sender: FDA-Public Use
  Company Number: 023762

PATIENT
  Sex: Female
  Weight: 90.7 kg

DRUGS (6)
  1. SILVADENE [Concomitant]
  2. PREDNISONE [Suspect]
     Indication: PYODERMA
     Dosage: (20 MG BID ORAL), (ORAL)
     Route: 048
     Dates: start: 20101201
  3. LASIX [Concomitant]
  4. CIMZIA [Suspect]
     Indication: CROHN'S DISEASE
     Dosage: (PFS (  PRE FILLED SYRINGE ) 2 INJECTIONS MONTHLY SUBCUTANEOUS)
     Route: 058
     Dates: start: 20090901
  5. DILAUDID [Concomitant]
  6. POTASSIUM [Concomitant]

REACTIONS (8)
  - HEPATIC ENZYME INCREASED [None]
  - ARTHRITIS [None]
  - ANAEMIA [None]
  - FATIGUE [None]
  - SKIN DISORDER [None]
  - PYODERMA GANGRENOSUM [None]
  - BRONCHITIS [None]
  - HEADACHE [None]
